FAERS Safety Report 5444589-2 (Version None)
Quarter: 2007Q3

REPORT INFORMATION
  Report Type: 
  Country: None (occurrence: None)
  Receive Date: 20070831
  Receipt Date: 20070828
  Transmission Date: 20080115
  Serious: Yes (Other)
  Sender: FDA-Public Use
  Company Number: 2007327440

PATIENT
  Age: 16 Month
  Sex: Male
  Weight: 13 kg

DRUGS (5)
  1. ACTIFED [Suspect]
     Indication: NASOPHARYNGITIS
     Dosage: 1.25 ML ONCE, ORAL
     Route: 048
     Dates: start: 20060801, end: 20060801
  2. GUAIFENESIN (GUAIFENSIN) [Concomitant]
  3. DEXCHLORPHENIRAMINE MALEATE [Concomitant]
  4. BETAMETHASONE [Concomitant]
  5. DROPROPIZINE (DROPROPIZINE) [Concomitant]

REACTIONS (2)
  - HALLUCINATION [None]
  - MUSCLE SPASMS [None]
